FAERS Safety Report 15143077 (Version 1)
Quarter: 2018Q3

REPORT INFORMATION
  Report Type: Other
  Country: None (occurrence: US)
  Receive Date: 20180713
  Receipt Date: 20180713
  Transmission Date: 20181010
  Serious: Yes (Hospitalization)
  Sender: FDA-Public Use
  Company Number: US-MEDAC PHARMA, INC.-2051959

PATIENT
  Age: 68 Year
  Sex: Female

DRUGS (2)
  1. MEHTOTREXATE [Suspect]
     Active Substance: METHOTREXATE
     Indication: RHEUMATOID ARTHRITIS
  2. TRIMETHOPRIM. [Suspect]
     Active Substance: TRIMETHOPRIM

REACTIONS (13)
  - Mucocutaneous ulceration [Recovered/Resolved]
  - Asthenia [Recovered/Resolved]
  - Renal failure [Recovered/Resolved]
  - Hypophagia [Recovered/Resolved]
  - Hypotension [Recovered/Resolved]
  - Stomatitis [Recovered/Resolved]
  - Drug level increased [Recovered/Resolved]
  - Drug interaction [Recovered/Resolved]
  - Lip ulceration [Recovered/Resolved]
  - Rash erythematous [Recovered/Resolved]
  - Leukopenia [Recovered/Resolved]
  - Lethargy [Recovered/Resolved]
  - Influenza like illness [Recovered/Resolved]
